FAERS Safety Report 24736647 (Version 4)
Quarter: 2025Q1

REPORT INFORMATION
  Report Type: Spontaneous
  Country: US (occurrence: US)
  Receive Date: 20241216
  Receipt Date: 20250319
  Transmission Date: 20250409
  Serious: Yes (Other)
  Sender: BRISTOL-MYERS SQUIBB COMPANY
  Company Number: US-BRISTOL-MYERS SQUIBB COMPANY-2024-192598

PATIENT
  Age: 82 Year
  Sex: Male
  Weight: 92.99 kg

DRUGS (1)
  1. REVLIMID [Suspect]
     Active Substance: LENALIDOMIDE
     Indication: Plasma cell myeloma
     Route: 048
     Dates: start: 20240909

REACTIONS (7)
  - Gout [Not Recovered/Not Resolved]
  - Haemoglobin decreased [Unknown]
  - Pollakiuria [Unknown]
  - Constipation [Unknown]
  - Fluid retention [Unknown]
  - Neuropathy peripheral [Recovering/Resolving]
  - Gait disturbance [Unknown]
